FAERS Safety Report 9614891 (Version 2)
Quarter: 2013Q4

REPORT INFORMATION
  Report Type: Spontaneous
  Country: US (occurrence: US)
  Receive Date: 20131011
  Receipt Date: 20131011
  Transmission Date: 20140711
  Serious: Yes (Hospitalization)
  Sender: FDA-Public Use
  Company Number: US-SANOFI-AVENTIS-2013SA088363

PATIENT
  Sex: 0

DRUGS (7)
  1. LANTUS [Suspect]
     Indication: TYPE 2 DIABETES MELLITUS
  2. LANTUS SOLOSTAR [Suspect]
     Indication: TYPE 2 DIABETES MELLITUS
  3. SOLOSTAR [Concomitant]
  4. THYROXIN [Concomitant]
     Indication: THYROID DISORDER
     Dosage: DOSE - 75
     Route: 065
     Dates: start: 2009
  5. HUMALOG [Concomitant]
     Indication: TYPE 2 DIABETES MELLITUS
     Route: 065
     Dates: start: 2008, end: 201306
  6. WARFARIN [Concomitant]
     Indication: THROMBOSIS
     Route: 065
     Dates: start: 20130108
  7. LISINOPRIL [Concomitant]
     Route: 065

REACTIONS (3)
  - Thrombosis [Unknown]
  - Bronchitis [Unknown]
  - Glycosylated haemoglobin increased [Unknown]
